FAERS Safety Report 5446285-4 (Version None)
Quarter: 2007Q3

REPORT INFORMATION
  Report Type: 
  Country: None (occurrence: None)
  Receive Date: 20070907
  Receipt Date: 20070827
  Transmission Date: 20080115
  Serious: Yes (Hospitalization)
  Sender: FDA-Public Use
  Company Number: US-ELI_LILLY_AND_COMPANY-US200708005988

PATIENT
  Sex: Female

DRUGS (1)
  1. FORTEO [Suspect]
     Indication: FALL
     Dosage: 20 UG, UNK
     Dates: start: 20061201

REACTIONS (4)
  - MOBILITY DECREASED [None]
  - MUSCLE SPASMS [None]
  - OESOPHAGEAL OBSTRUCTION [None]
  - OESOPHAGEAL RUPTURE [None]
